FAERS Safety Report 20903705 (Version 6)
Quarter: 2022Q4

REPORT INFORMATION
  Report Type: Spontaneous
  Country: CA (occurrence: CA)
  Receive Date: 20220602
  Receipt Date: 20221205
  Transmission Date: 20230112
  Serious: Yes (Death, Other)
  Sender: FDA-Public Use
  Company Number: CA-BAUSCH-BL-2022-011887

PATIENT
  Age: 59 Year
  Sex: Female

DRUGS (161)
  1. DICLOFENAC SODIUM [Suspect]
     Active Substance: DICLOFENAC SODIUM
     Indication: Product used for unknown indication
     Dosage: UNK
     Route: 065
  2. DICLOFENAC SODIUM [Suspect]
     Active Substance: DICLOFENAC SODIUM
  3. DESOXIMETASONE [Suspect]
     Active Substance: DESOXIMETASONE
     Indication: Rheumatoid arthritis
     Dosage: UNK
     Route: 003
  4. DESOXIMETASONE [Suspect]
     Active Substance: DESOXIMETASONE
     Dosage: UNK
     Route: 048
  5. DESOXIMETASONE [Suspect]
     Active Substance: DESOXIMETASONE
     Dosage: UNK
     Route: 067
  6. DESOXIMETASONE [Suspect]
     Active Substance: DESOXIMETASONE
     Dosage: UNK
     Route: 061
  7. DESOXIMETASONE [Suspect]
     Active Substance: DESOXIMETASONE
     Route: 061
  8. DESOXIMETASONE [Suspect]
     Active Substance: DESOXIMETASONE
     Route: 067
  9. DESOXIMETASONE [Suspect]
     Active Substance: DESOXIMETASONE
     Route: 048
  10. DESOXIMETASONE [Suspect]
     Active Substance: DESOXIMETASONE
     Route: 003
  11. CORTISONE ACETATE [Suspect]
     Active Substance: CORTISONE ACETATE
     Indication: Rheumatoid arthritis
     Dosage: 25 MG (OINTMENT)
     Route: 048
  12. CORTISONE ACETATE [Suspect]
     Active Substance: CORTISONE ACETATE
     Route: 048
  13. DICLOFENAC POTASSIUM [Suspect]
     Active Substance: DICLOFENAC POTASSIUM
     Indication: Product used for unknown indication
     Dosage: UNK
     Route: 065
  14. DICLOFENAC POTASSIUM [Suspect]
     Active Substance: DICLOFENAC POTASSIUM
  15. HYDROCORTISONE ACETATE [Suspect]
     Active Substance: HYDROCORTISONE ACETATE
     Indication: Rheumatoid arthritis
     Dosage: 25 MG
     Route: 061
  16. HYDROCORTISONE ACETATE [Suspect]
     Active Substance: HYDROCORTISONE ACETATE
     Dosage: 25 MG
     Route: 048
  17. ARAVA [Suspect]
     Active Substance: LEFLUNOMIDE
     Indication: Rheumatoid arthritis
     Dosage: 20 MG (TABLET)
     Route: 048
  18. HYDROXYCHLOROQUINE SULFATE [Suspect]
     Active Substance: HYDROXYCHLOROQUINE SULFATE
     Indication: Product used for unknown indication
     Dosage: 400 MG
     Route: 048
  19. HYDROXYCHLOROQUINE SULFATE [Suspect]
     Active Substance: HYDROXYCHLOROQUINE SULFATE
     Route: 048
  20. DIPHENHYDRAMINE HYDROCHLORIDE [Suspect]
     Active Substance: DIPHENHYDRAMINE HYDROCHLORIDE
     Indication: Product used for unknown indication
     Dosage: UNK
     Route: 065
  21. DIPHENHYDRAMINE HYDROCHLORIDE [Suspect]
     Active Substance: DIPHENHYDRAMINE HYDROCHLORIDE
  22. ACETAMINOPHEN [Suspect]
     Active Substance: ACETAMINOPHEN
     Indication: Product used for unknown indication
     Dosage: UNK
     Route: 065
  23. ACETAMINOPHEN [Suspect]
     Active Substance: ACETAMINOPHEN
     Indication: Product used for unknown indication
  24. ALENDRONATE SODIUM [Suspect]
     Active Substance: ALENDRONATE SODIUM
     Indication: Rheumatoid arthritis
     Dosage: UNK
     Route: 048
  25. ALENDRONATE SODIUM [Suspect]
     Active Substance: ALENDRONATE SODIUM
     Dosage: UNK
     Route: 065
  26. ALENDRONATE SODIUM [Suspect]
     Active Substance: ALENDRONATE SODIUM
  27. ALENDRONATE SODIUM [Suspect]
     Active Substance: ALENDRONATE SODIUM
     Route: 048
  28. PREDNISONE [Suspect]
     Active Substance: PREDNISONE
     Indication: Product used for unknown indication
     Dosage: UNK
     Route: 048
  29. PREDNISONE [Suspect]
     Active Substance: PREDNISONE
     Dosage: 25 MG
     Route: 048
  30. PREDNISONE [Suspect]
     Active Substance: PREDNISONE
     Dosage: 40 MG
     Route: 065
  31. PREDNISONE [Suspect]
     Active Substance: PREDNISONE
     Dosage: UNK
     Route: 065
  32. PREDNISONE [Suspect]
     Active Substance: PREDNISONE
     Route: 048
  33. PREDNISONE [Suspect]
     Active Substance: PREDNISONE
     Route: 048
  34. PREDNISONE [Suspect]
     Active Substance: PREDNISONE
  35. PREDNISONE [Suspect]
     Active Substance: PREDNISONE
  36. FOLIC ACID [Suspect]
     Active Substance: FOLIC ACID
     Indication: Rheumatoid arthritis
     Dosage: 5 MG
     Route: 065
  37. FOLIC ACID [Suspect]
     Active Substance: FOLIC ACID
     Dosage: 25 MG
     Route: 065
  38. FOLIC ACID [Suspect]
     Active Substance: FOLIC ACID
     Dosage: 0.5 MG
     Route: 065
  39. FOLIC ACID [Suspect]
     Active Substance: FOLIC ACID
     Dosage: UNK
     Route: 065
  40. FOLIC ACID [Suspect]
     Active Substance: FOLIC ACID
     Dosage: 1 MG
     Route: 065
  41. FOLIC ACID [Suspect]
     Active Substance: FOLIC ACID
  42. FOLIC ACID [Suspect]
     Active Substance: FOLIC ACID
  43. FOLIC ACID [Suspect]
     Active Substance: FOLIC ACID
  44. FOLIC ACID [Suspect]
     Active Substance: FOLIC ACID
  45. FOLIC ACID [Suspect]
     Active Substance: FOLIC ACID
  46. CETIRIZINE HYDROCHLORIDE [Suspect]
     Active Substance: CETIRIZINE HYDROCHLORIDE
     Indication: Rheumatoid arthritis
     Dosage: 10 MG
     Route: 065
  47. CETIRIZINE HYDROCHLORIDE [Suspect]
     Active Substance: CETIRIZINE HYDROCHLORIDE
  48. CETIRIZINE HYDROCHLORIDE [Suspect]
     Active Substance: CETIRIZINE HYDROCHLORIDE
  49. LEFLUNOMIDE [Suspect]
     Active Substance: LEFLUNOMIDE
     Indication: Rheumatoid arthritis
     Dosage: UNK
     Route: 065
  50. LEFLUNOMIDE [Suspect]
     Active Substance: LEFLUNOMIDE
  51. ALENDRONIC ACID [Suspect]
     Active Substance: ALENDRONIC ACID
     Indication: Product used for unknown indication
     Dosage: UNK
     Route: 065
  52. ALENDRONIC ACID [Suspect]
     Active Substance: ALENDRONIC ACID
     Dosage: UNK
     Route: 065
  53. ALENDRONIC ACID [Suspect]
     Active Substance: ALENDRONIC ACID
  54. METHYLPREDNISOLONE SODIUM SUCCINATE [Suspect]
     Active Substance: METHYLPREDNISOLONE SODIUM SUCCINATE
     Indication: Product used for unknown indication
     Dosage: UNK
     Route: 065
  55. METHYLPREDNISOLONE SODIUM SUCCINATE [Suspect]
     Active Substance: METHYLPREDNISOLONE SODIUM SUCCINATE
  56. SULFASALAZINE [Suspect]
     Active Substance: SULFASALAZINE
     Indication: Rheumatoid arthritis
     Dosage: 1000 MG
     Route: 058
  57. SULFASALAZINE [Suspect]
     Active Substance: SULFASALAZINE
     Dosage: 500 MG
     Route: 048
  58. SULFASALAZINE [Suspect]
     Active Substance: SULFASALAZINE
     Dosage: 500 MG
     Route: 048
  59. SULFASALAZINE [Suspect]
     Active Substance: SULFASALAZINE
     Route: 058
  60. SULFASALAZINE [Suspect]
     Active Substance: SULFASALAZINE
     Route: 048
  61. METHOTREXATE [Suspect]
     Active Substance: METHOTREXATE
     Indication: Product used for unknown indication
     Dosage: 25 MG
     Route: 058
  62. METHOTREXATE [Suspect]
     Active Substance: METHOTREXATE
     Dosage: 25 MG
     Route: 048
  63. METHOTREXATE [Suspect]
     Active Substance: METHOTREXATE
     Dosage: UNK
     Route: 013
  64. METHOTREXATE [Suspect]
     Active Substance: METHOTREXATE
     Dosage: 20 MG
     Route: 065
  65. METHOTREXATE [Suspect]
     Active Substance: METHOTREXATE
     Dosage: 25 MG
     Route: 065
  66. METHOTREXATE [Suspect]
     Active Substance: METHOTREXATE
     Route: 013
  67. METHOTREXATE [Suspect]
     Active Substance: METHOTREXATE
  68. METHOTREXATE [Suspect]
     Active Substance: METHOTREXATE
     Route: 048
  69. METHOTREXATE [Suspect]
     Active Substance: METHOTREXATE
     Route: 058
  70. METHOTREXATE [Suspect]
     Active Substance: METHOTREXATE
  71. PSEUDOEPHEDRINE HYDROCHLORIDE [Suspect]
     Active Substance: PSEUDOEPHEDRINE HYDROCHLORIDE
     Indication: Rheumatoid arthritis
     Dosage: UNK
     Route: 048
  72. PSEUDOEPHEDRINE HYDROCHLORIDE [Suspect]
     Active Substance: PSEUDOEPHEDRINE HYDROCHLORIDE
     Route: 048
  73. ALENDRONATE SODIUM [Suspect]
     Active Substance: ALENDRONATE SODIUM
     Indication: Rheumatoid arthritis
     Dosage: UNK
     Route: 048
  74. ALENDRONATE SODIUM [Suspect]
     Active Substance: ALENDRONATE SODIUM
     Dosage: UNK
     Route: 065
  75. ALENDRONATE SODIUM [Suspect]
     Active Substance: ALENDRONATE SODIUM
  76. ALENDRONATE SODIUM [Suspect]
     Active Substance: ALENDRONATE SODIUM
     Route: 048
  77. PREDNISONE [Suspect]
     Active Substance: PREDNISONE
     Indication: Product used for unknown indication
     Dosage: 40 MG
     Route: 048
  78. PREDNISONE [Suspect]
     Active Substance: PREDNISONE
     Indication: Product used for unknown indication
     Route: 048
  79. ACTEMRA [Suspect]
     Active Substance: TOCILIZUMAB
     Indication: Rheumatoid arthritis
     Dosage: UNK
     Route: 042
  80. ACTEMRA [Suspect]
     Active Substance: TOCILIZUMAB
  81. ADALIMUMAB [Suspect]
     Active Substance: ADALIMUMAB
     Indication: Rheumatoid arthritis
     Dosage: 40 MG (SOLUTION)
     Route: 058
  82. ADALIMUMAB [Suspect]
     Active Substance: ADALIMUMAB
     Route: 058
  83. CALCIUM CARBONATE\CALCIUM LACTATE GLUCONATE [Suspect]
     Active Substance: CALCIUM CARBONATE\CALCIUM LACTATE GLUCONATE
     Indication: Product used for unknown indication
     Dosage: UNK
     Route: 065
  84. CALCIUM GLUBIONATE [Suspect]
     Active Substance: CALCIUM GLUBIONATE
     Indication: Product used for unknown indication
     Dosage: UNK
     Route: 065
  85. CALCIUM GLUBIONATE [Suspect]
     Active Substance: CALCIUM GLUBIONATE
  86. CERTOLIZUMAB PEGOL [Suspect]
     Active Substance: CERTOLIZUMAB PEGOL
     Indication: Product used for unknown indication
     Dosage: UNK
     Route: 065
  87. CERTOLIZUMAB PEGOL [Suspect]
     Active Substance: CERTOLIZUMAB PEGOL
  88. CIMZIA [Suspect]
     Active Substance: CERTOLIZUMAB PEGOL
     Indication: Rheumatoid arthritis
     Dosage: 400 MG
     Route: 058
  89. CIMZIA [Suspect]
     Active Substance: CERTOLIZUMAB PEGOL
     Route: 058
  90. COSENTYX [Suspect]
     Active Substance: SECUKINUMAB
     Indication: Product used for unknown indication
     Dosage: UNK
     Route: 065
  91. COSENTYX [Suspect]
     Active Substance: SECUKINUMAB
  92. ENBREL [Suspect]
     Active Substance: ETANERCEPT
     Indication: Rheumatoid arthritis
     Dosage: UNK
     Route: 065
  93. ENBREL [Suspect]
     Active Substance: ETANERCEPT
  94. ERELZI [Suspect]
     Active Substance: ETANERCEPT-SZZS
     Indication: Rheumatoid arthritis
     Dosage: UNK
     Route: 065
  95. ERELZI [Suspect]
     Active Substance: ETANERCEPT-SZZS
  96. GOLIMUMAB [Suspect]
     Active Substance: GOLIMUMAB
     Indication: Product used for unknown indication
     Dosage: UNK
     Route: 065
  97. GOLIMUMAB [Suspect]
     Active Substance: GOLIMUMAB
  98. HUMIRA [Suspect]
     Active Substance: ADALIMUMAB
     Indication: Rheumatoid arthritis
     Dosage: 4 MG (SOLUTION)
     Route: 058
  99. HUMIRA [Suspect]
     Active Substance: ADALIMUMAB
     Dosage: 40 MG
     Route: 058
  100. HYDROXYCHLOROQUINE [Suspect]
     Active Substance: HYDROXYCHLOROQUINE
     Indication: Rheumatoid arthritis
     Dosage: 400 MG
     Route: 065
  101. HYDROXYCHLOROQUINE [Suspect]
     Active Substance: HYDROXYCHLOROQUINE
     Dosage: UNK
     Route: 065
  102. HYDROXYCHLOROQUINE [Suspect]
     Active Substance: HYDROXYCHLOROQUINE
  103. HYDROXYCHLOROQUINE [Suspect]
     Active Substance: HYDROXYCHLOROQUINE
  104. ORENCIA [Suspect]
     Active Substance: ABATACEPT
     Indication: Rheumatoid arthritis
     Dosage: UNK
     Route: 042
  105. ORENCIA [Suspect]
     Active Substance: ABATACEPT
     Dosage: UNK
     Route: 058
  106. ORENCIA [Suspect]
     Active Substance: ABATACEPT
     Route: 058
  107. ORENCIA [Suspect]
     Active Substance: ABATACEPT
  108. OTEZLA [Suspect]
     Active Substance: APREMILAST
     Indication: Product used for unknown indication
     Dosage: 3 MG
     Route: 048
  109. OTEZLA [Suspect]
     Active Substance: APREMILAST
     Route: 048
  110. PHTHALYLSULFATHIAZOLE [Suspect]
     Active Substance: PHTHALYLSULFATHIAZOLE
     Indication: Product used for unknown indication
     Dosage: UNK
     Route: 065
  111. PHTHALYLSULFATHIAZOLE [Suspect]
     Active Substance: PHTHALYLSULFATHIAZOLE
  112. CETIRIZINE HYDROCHLORIDE\PSEUDOEPHEDRINE HYDROCHLORIDE [Suspect]
     Active Substance: CETIRIZINE HYDROCHLORIDE\PSEUDOEPHEDRINE HYDROCHLORIDE
     Indication: Rheumatoid arthritis
     Dosage: TABLET (EXTENDED- RELEASE)
     Route: 067
  113. REMICADE [Suspect]
     Active Substance: INFLIXIMAB
     Indication: Rheumatoid arthritis
     Dosage: POWDER FOR SOLUTION INTRAVENOUS
     Route: 042
  114. REMICADE [Suspect]
     Active Substance: INFLIXIMAB
     Indication: Colitis ulcerative
     Dosage: UNK
     Route: 065
  115. REMICADE [Suspect]
     Active Substance: INFLIXIMAB
     Dosage: UNK
     Route: 042
  116. REMICADE [Suspect]
     Active Substance: INFLIXIMAB
     Dosage: UNK
     Route: 042
  117. REMICADE [Suspect]
     Active Substance: INFLIXIMAB
     Dosage: UNK
     Route: 041
  118. REMICADE [Suspect]
     Active Substance: INFLIXIMAB
     Dosage: UNK
     Route: 058
  119. REMICADE [Suspect]
     Active Substance: INFLIXIMAB
  120. REMICADE [Suspect]
     Active Substance: INFLIXIMAB
     Dosage: POWDER FOR SOLUTION INTRAVENOUS
  121. REMICADE [Suspect]
     Active Substance: INFLIXIMAB
  122. REMICADE [Suspect]
     Active Substance: INFLIXIMAB
  123. REMICADE [Suspect]
     Active Substance: INFLIXIMAB
     Route: 058
  124. SIMPONI [Suspect]
     Active Substance: GOLIMUMAB
     Indication: Rheumatoid arthritis
     Dosage: UNK (SOLUTION)
     Route: 058
  125. SIMPONI [Suspect]
     Active Substance: GOLIMUMAB
     Dosage: 50 MG (SOLUTION SUBCUTANEOUS)
     Route: 065
  126. SIMPONI [Suspect]
     Active Substance: GOLIMUMAB
  127. SIMPONI [Suspect]
     Active Substance: GOLIMUMAB
     Route: 058
  128. STELARA [Suspect]
     Active Substance: USTEKINUMAB
     Indication: Rheumatoid arthritis
     Dosage: SOLUTION SUBCUTANEOUS
     Route: 058
  129. STELARA [Suspect]
     Active Substance: USTEKINUMAB
     Dosage: SOLUTION SUBCUTANEOUS
  130. TOCILIZUMAB [Suspect]
     Active Substance: TOCILIZUMAB
     Indication: Rheumatoid arthritis
     Dosage: UNK
     Route: 058
  131. TOCILIZUMAB [Suspect]
     Active Substance: TOCILIZUMAB
     Route: 058
  132. PREDNISONE [Suspect]
     Active Substance: PREDNISONE
     Indication: Rheumatoid arthritis
     Dosage: UNK
     Route: 048
  133. XELJANZ [Suspect]
     Active Substance: TOFACITINIB CITRATE
     Indication: Rheumatoid arthritis
     Dosage: UNK
     Route: 048
  134. XELJANZ [Suspect]
     Active Substance: TOFACITINIB CITRATE
     Dosage: 5 MG
     Route: 065
  135. XELJANZ [Suspect]
     Active Substance: TOFACITINIB CITRATE
  136. XELJANZ [Suspect]
     Active Substance: TOFACITINIB CITRATE
     Route: 048
  137. RITUXIMAB [Suspect]
     Active Substance: RITUXIMAB
     Indication: Rheumatoid arthritis
     Dosage: UNK
     Route: 042
  138. RITUXIMAB [Suspect]
     Active Substance: RITUXIMAB
     Dosage: UNK
     Route: 041
  139. RITUXIMAB [Suspect]
     Active Substance: RITUXIMAB
     Dosage: UNK
     Route: 058
  140. RITUXIMAB [Suspect]
     Active Substance: RITUXIMAB
     Route: 058
  141. RITUXIMAB [Suspect]
     Active Substance: RITUXIMAB
  142. RITUXIMAB [Suspect]
     Active Substance: RITUXIMAB
  143. HYDROCORTISONE [Suspect]
     Active Substance: HYDROCORTISONE
     Indication: Rheumatoid arthritis
     Dosage: 25 MG
     Route: 048
  144. HYDROCORTISONE [Suspect]
     Active Substance: HYDROCORTISONE
     Dosage: 25 MG
     Route: 061
  145. HYDROCORTISONE [Suspect]
     Active Substance: HYDROCORTISONE
     Dosage: 25 MG
     Route: 048
  146. DIETARY SUPPLEMENT [Suspect]
     Active Substance: DIETARY SUPPLEMENT
     Indication: Product used for unknown indication
     Dosage: UNK
  147. CAFFEINE CITRATE [Concomitant]
     Active Substance: CAFFEINE CITRATE
     Indication: Product used for unknown indication
     Dosage: UNK
     Route: 065
  148. CAFFEINE CITRATE [Concomitant]
     Active Substance: CAFFEINE CITRATE
  149. CODEINE [Concomitant]
     Active Substance: CODEINE
     Indication: Product used for unknown indication
     Dosage: UNK
     Route: 065
  150. CODEINE [Concomitant]
     Active Substance: CODEINE
  151. IBUPROFEN [Concomitant]
     Active Substance: IBUPROFEN
     Indication: Product used for unknown indication
     Dosage: UNK
     Route: 065
  152. IBUPROFEN [Concomitant]
     Active Substance: IBUPROFEN
  153. LISINOPRIL [Concomitant]
     Active Substance: LISINOPRIL
     Indication: Product used for unknown indication
     Dosage: UNK
     Route: 065
  154. LISINOPRIL [Concomitant]
     Active Substance: LISINOPRIL
  155. LISINOPRIL [Concomitant]
     Active Substance: LISINOPRIL
  156. SULFASALAZINE [Concomitant]
     Active Substance: SULFASALAZINE
     Indication: Product used for unknown indication
     Dosage: 1 DF
     Route: 048
  157. SULFASALAZINE [Concomitant]
     Active Substance: SULFASALAZINE
     Dosage: 1 DF
     Route: 048
  158. TOFACITINIB CITRATE [Concomitant]
     Active Substance: TOFACITINIB CITRATE
     Indication: Product used for unknown indication
     Dosage: 5 MG
     Route: 048
  159. TOFACITINIB CITRATE [Concomitant]
     Active Substance: TOFACITINIB CITRATE
     Dosage: 5 MG
     Route: 048
  160. VITAMIN D3 [Concomitant]
     Active Substance: CHOLECALCIFEROL
     Indication: Product used for unknown indication
     Dosage: UNK
     Route: 065
  161. VITAMIN D3 [Concomitant]
     Active Substance: CHOLECALCIFEROL

REACTIONS (56)
  - Abdominal discomfort [Fatal]
  - Alopecia [Fatal]
  - Anti-cyclic citrullinated peptide antibody [Fatal]
  - Anti-cyclic citrullinated peptide antibody positive [Fatal]
  - Arthralgia [Fatal]
  - Arthropathy [Fatal]
  - Blister [Fatal]
  - Blood cholesterol increased [Fatal]
  - Condition aggravated [Fatal]
  - Decreased appetite [Fatal]
  - Diarrhoea [Fatal]
  - Discomfort [Fatal]
  - Drug intolerance [Fatal]
  - Duodenal ulcer perforation [Fatal]
  - Fatigue [Fatal]
  - Fibromyalgia [Fatal]
  - General physical health deterioration [Fatal]
  - Glossodynia [Fatal]
  - Hand deformity [Fatal]
  - Headache [Fatal]
  - Helicobacter infection [Fatal]
  - Hepatic enzyme increased [Fatal]
  - Hypercholesterolaemia [Fatal]
  - Hypersensitivity [Fatal]
  - Hypertension [Fatal]
  - Hypoaesthesia [Fatal]
  - Infusion related reaction [Fatal]
  - Injury [Fatal]
  - Joint swelling [Fatal]
  - Liver injury [Fatal]
  - Malaise [Fatal]
  - Mobility decreased [Fatal]
  - Musculoskeletal stiffness [Fatal]
  - Pain [Fatal]
  - Pemphigus [Fatal]
  - Pericarditis [Fatal]
  - Psoriatic arthropathy [Fatal]
  - Rash [Fatal]
  - Rheumatic fever [Fatal]
  - Rheumatoid arthritis [Fatal]
  - Rheumatoid factor positive [Fatal]
  - Swelling [Fatal]
  - Synovitis [Fatal]
  - Systemic lupus erythematosus [Fatal]
  - Type 2 diabetes mellitus [Fatal]
  - Wound [Fatal]
  - Adverse event [Fatal]
  - Adverse drug reaction [Fatal]
  - Product use in unapproved indication [Fatal]
  - Exposure during pregnancy [Fatal]
  - Product use issue [Fatal]
  - Intentional product use issue [Fatal]
  - Contraindicated product administered [Fatal]
  - Treatment failure [Fatal]
  - Therapeutic product effect decreased [Fatal]
  - Drug ineffective [Fatal]
